FAERS Safety Report 4308401-7 (Version None)
Quarter: 2004Q1

REPORT INFORMATION
  Report Type: 
  Country: None (occurrence: None)
  Receive Date: 20040301
  Receipt Date: 20040129
  Transmission Date: 20041129
  Serious: Yes (Hospitalization, Other)
  Sender: FDA-Public Use
  Company Number: WAES 0401USA02243

PATIENT
  Age: 45 Year
  Sex: Male

DRUGS (7)
  1. MONOPRIL [Concomitant]
     Indication: HYPERTENSION
  2. GLYBURIDE [Concomitant]
  3. HYDRODIURIL [Concomitant]
     Route: 048
  4. LANTUS [Concomitant]
  5. METFORMIN [Concomitant]
  6. ZOCOR [Suspect]
     Indication: HYPERCHOLESTEROLAEMIA
     Route: 048
     Dates: end: 20031231
  7. ZOCOR [Suspect]
     Indication: HYPERLIPIDAEMIA
     Route: 048
     Dates: end: 20031231

REACTIONS (4)
  - CARDIAC FAILURE CONGESTIVE [None]
  - CARDIOMEGALY [None]
  - CHEST PAIN [None]
  - RHABDOMYOLYSIS [None]
